FAERS Safety Report 6921571-7 (Version None)
Quarter: 2010Q3

REPORT INFORMATION
  Report Type: 
  Country: None (occurrence: None)
  Receive Date: 20100812
  Receipt Date: 20100730
  Transmission Date: 20110219
  Serious: Yes (Hospitalization)
  Sender: FDA-Public Use
  Company Number: US-ELI_LILLY_AND_COMPANY-US200912004360

PATIENT
  Sex: Female

DRUGS (13)
  1. FORTEO [Suspect]
     Indication: OSTEOPOROSIS
     Dosage: 20 UG, DAILY (1/D)
     Dates: start: 20090101, end: 20091101
  2. CYMBALTA [Suspect]
     Indication: PAIN
     Dosage: 90 MG, DAILY (1/D)
     Dates: start: 20090601
  3. SIMVASTATIN [Concomitant]
     Dosage: 40 MG, DAILY (1/D)
  4. PREMARIN [Concomitant]
     Dosage: 0.3 MG, DAILY (1/D)
  5. BALACET [Concomitant]
  6. TYLENOL (CAPLET) [Concomitant]
     Dosage: UNK, AS NEEDED
  7. LOMOTIL [Concomitant]
  8. LIBRAX /00847101/ [Concomitant]
  9. VITAMIN D [Concomitant]
     Dosage: 50000 U, WEEKLY (1/W)
  10. VITAMIN D [Concomitant]
     Dosage: 2000 U, 6/W
  11. CALCIUM [Concomitant]
     Dosage: 1300 MG, DAILY (1/D)
  12. BACLOFEN [Concomitant]
     Dosage: 30 MG, DAILY (1/D)
  13. LORTAB [Concomitant]
     Dosage: 10 MG, AS NEEDED

REACTIONS (4)
  - BLADDER PROLAPSE [None]
  - BLOOD DISORDER [None]
  - INJECTION SITE HAEMATOMA [None]
  - ORAL SURGERY [None]
